FAERS Safety Report 10075943 (Version 1)
Quarter: 2014Q2

REPORT INFORMATION
  Report Type: Spontaneous
  Country: US (occurrence: None)
  Receive Date: 20140411
  Receipt Date: 20140411
  Transmission Date: 20141212
  Serious: Yes (Hospitalization)
  Sender: FDA-Public Use
  Company Number: None

PATIENT
  Age: 68 Year
  Sex: Male
  Weight: 91.6 kg

DRUGS (2)
  1. SIPULEUCEL-T [Suspect]
     Indication: PROSTATE CANCER
     Dosage: RE-INFUSION OF 1.5-2.0 LEUK PROD?EVERY 2 WKS X3?INTRAVENOUS
     Route: 042
     Dates: start: 20131107, end: 20131205
  2. PTVG-HP VECTOR CONTAINING CDNA FOR PAP [Suspect]
     Indication: PROSTATE CANCER
     Dosage: 100 UG-EVERY 2 WKS X4, THEN ?EVERY 3 MO X2 ?INTRADERMAL
     Dates: start: 20131216, end: 20140127

REACTIONS (3)
  - Fall [None]
  - Facial bones fracture [None]
  - Subgaleal haematoma [None]
